FAERS Safety Report 12670747 (Version 1)
Quarter: 2016Q3

REPORT INFORMATION
  Report Type: Spontaneous
  Country: US (occurrence: US)
  Receive Date: 20160822
  Receipt Date: 20160822
  Transmission Date: 20161109
  Serious: No
  Sender: FDA-Public Use
  Company Number: US-JAZZ-2016-US-005978

PATIENT
  Age: 36 Year
  Sex: Female

DRUGS (16)
  1. GILDESS FE [Concomitant]
     Active Substance: ETHINYL ESTRADIOL\NORETHINDRONE
  2. IBUPROFEN. [Concomitant]
     Active Substance: IBUPROFEN
  3. XYZAL [Concomitant]
     Active Substance: LEVOCETIRIZINE DIHYDROCHLORIDE
  4. RHINOCORT AQUA [Concomitant]
     Active Substance: BUDESONIDE
  5. XYREM [Suspect]
     Active Substance: SODIUM OXYBATE
     Dosage: 3 G, BID
     Route: 048
     Dates: start: 201603, end: 201603
  6. EPIPEN [Concomitant]
     Active Substance: EPINEPHRINE
  7. CLODERM [Concomitant]
     Active Substance: CLOCORTOLONE PIVALATE
  8. VYVANSE [Concomitant]
     Active Substance: LISDEXAMFETAMINE DIMESYLATE
  9. ZOLMITRIPTAN. [Concomitant]
     Active Substance: ZOLMITRIPTAN
  10. BUPROPION HYDROCHLORIDE XL [Concomitant]
     Active Substance: BUPROPION HYDROCHLORIDE
  11. XYREM [Suspect]
     Active Substance: SODIUM OXYBATE
     Indication: NARCOLEPSY
     Dosage: 2.25 G, BID
     Route: 048
     Dates: start: 201603, end: 201603
  12. XYREM [Suspect]
     Active Substance: SODIUM OXYBATE
     Dosage: 3.75 G, BID
     Route: 048
     Dates: start: 201603
  13. ESOMEPRAZOLE MAGNESIUM DR [Concomitant]
     Active Substance: ESOMEPRAZOLE MAGNESIUM
  14. ORACEA [Concomitant]
     Active Substance: DOXYCYCLINE
  15. PROVIGIL [Concomitant]
     Active Substance: MODAFINIL
  16. TOPAMAX [Concomitant]
     Active Substance: TOPIRAMATE

REACTIONS (2)
  - Fatigue [Unknown]
  - Memory impairment [Unknown]

NARRATIVE: CASE EVENT DATE: 201603
